FAERS Safety Report 20779655 (Version 2)
Quarter: 2022Q3

REPORT INFORMATION
  Report Type: Spontaneous
  Country: CA (occurrence: CA)
  Receive Date: 20220503
  Receipt Date: 20220729
  Transmission Date: 20221027
  Serious: Yes (Death, Other)
  Sender: FDA-Public Use
  Company Number: CA-SANOFI-01082590

PATIENT
  Age: 69 Year
  Sex: Female

DRUGS (11)
  1. LOVENOX [Suspect]
     Active Substance: ENOXAPARIN SODIUM
     Indication: Needle biopsy site unspecified abnormal
     Dosage: UNK
     Dates: start: 20220411, end: 20220414
  2. LOVENOX [Suspect]
     Active Substance: ENOXAPARIN SODIUM
     Dosage: UNK
     Dates: start: 20210415, end: 20210415
  3. WARFARIN [Concomitant]
     Active Substance: WARFARIN
     Dosage: UNK
     Dates: end: 20220410
  4. DIGOXIN [Concomitant]
     Active Substance: DIGOXIN
     Dosage: 0.125 MG, QD
  5. DEXAMETHASONE [Concomitant]
     Active Substance: DEXAMETHASONE
     Dosage: 4 MG, BID
  6. PANTOPRAZOLE [Concomitant]
     Active Substance: PANTOPRAZOLE
     Dosage: 40 MG, QD
  7. MORPHINE SULFATE [Concomitant]
     Active Substance: MORPHINE SULFATE
     Indication: Tumour pain
     Dosage: 1 TO 2 TABLETS EVERY 4 HOURS AS NEEDED
  8. VITAMIN D3 [Concomitant]
     Active Substance: CHOLECALCIFEROL
     Dosage: 2000 IU, QD
  9. HEPARIN [Concomitant]
     Active Substance: HEPARIN SODIUM
     Dosage: UNK UNK, QD
  10. METOPROLOL TARTRATE [Concomitant]
     Active Substance: METOPROLOL TARTRATE
     Dosage: 100 MG, BID
  11. IRON [Concomitant]
     Active Substance: IRON
     Dosage: 300 MG, QD

REACTIONS (14)
  - Disease complication [Fatal]
  - Blood pressure decreased [Fatal]
  - Dyspnoea [Fatal]
  - Dizziness [Fatal]
  - Nausea [Fatal]
  - Atrial fibrillation [Unknown]
  - Internal haemorrhage [Unknown]
  - Haemoglobin decreased [Unknown]
  - Discomfort [Unknown]
  - Malaise [Unknown]
  - Pain [Unknown]
  - Cardiac operation [Unknown]
  - Surgery [Unknown]
  - Product prescribing issue [Unknown]

NARRATIVE: CASE EVENT DATE: 20220415
